FAERS Safety Report 9780787 (Version 1)
Quarter: 2013Q4

REPORT INFORMATION
  Report Type: Spontaneous
  Country: JP (occurrence: JP)
  Receive Date: 20131224
  Receipt Date: 20131224
  Transmission Date: 20140711
  Serious: Yes (Other)
  Sender: FDA-Public Use
  Company Number: JP-NAPPMUNDI-GBR-2013-0016754

PATIENT
  Age: 39 Year
  Sex: Female

DRUGS (8)
  1. NORSPAN 5MG [Suspect]
     Indication: SPINAL CORD INFARCTION
     Dosage: 5 MCG, Q1H
     Route: 062
     Dates: start: 20130528, end: 20130530
  2. NORSPAN 5MG [Suspect]
     Indication: PAIN IN EXTREMITY
  3. NORSPAN 5MG [Suspect]
     Indication: SPINAL PAIN
  4. NAUZELIN [Concomitant]
     Indication: PROPHYLAXIS OF NAUSEA AND VOMITING
     Dosage: UNK
     Route: 048
  5. RINLAXER [Concomitant]
     Dosage: 750 MG, DAILY
     Route: 048
  6. CELECOX [Concomitant]
     Indication: ANALGESIC THERAPY
     Dosage: 200 MG, DAILY
     Route: 048
  7. LOXONIN [Concomitant]
     Indication: ANALGESIC THERAPY
  8. TAKEPRON [Concomitant]
     Dosage: 15 MG, DAILY
     Route: 048

REACTIONS (4)
  - Vomiting [Recovered/Resolved]
  - Nausea [Recovered/Resolved]
  - Cold sweat [Recovered/Resolved]
  - Decreased appetite [Recovered/Resolved]
